FAERS Safety Report 5216974-5 (Version None)
Quarter: 2007Q1

REPORT INFORMATION
  Report Type: 
  Country: None (occurrence: None)
  Receive Date: 20070124
  Receipt Date: 20070119
  Transmission Date: 20070707
  Serious: Yes (Hospitalization)
  Sender: FDA-Public Use
  Company Number: JP-BAYER-200611173BYL

PATIENT
  Age: 56 Year
  Sex: Male
  Weight: 57 kg

DRUGS (7)
  1. BAY43-9006 [Suspect]
     Indication: RENAL CELL CARCINOMA STAGE UNSPECIFIED
     Dosage: TOTAL DAILY DOSE: 800 MG  UNIT DOSE: 200 MG
     Route: 048
     Dates: start: 20050318, end: 20061027
  2. NAPROXEN [Suspect]
     Indication: PYREXIA
     Dosage: TOTAL DAILY DOSE: 100 MG  UNIT DOSE: 100 MG
     Route: 048
     Dates: start: 20060920, end: 20061027
  3. BIOFERMIN [Concomitant]
     Indication: DIARRHOEA
     Dosage: TOTAL DAILY DOSE: 3 G  UNIT DOSE: 1 G
     Route: 048
     Dates: start: 20060120, end: 20061027
  4. AMLODIPINE BESYLATE [Concomitant]
     Indication: HYPERTENSION
     Dosage: TOTAL DAILY DOSE: 5 MG  UNIT DOSE: 5 MG
     Route: 048
     Dates: start: 20060218, end: 20061027
  5. TOCLASE [Concomitant]
     Indication: COUGH
     Route: 048
     Dates: start: 20060512, end: 20061027
  6. ANTIPYRETICS [Concomitant]
     Indication: PYREXIA
     Route: 065
     Dates: start: 20060904
  7. ANTIBIOTIC PREPARATIONS [Concomitant]
     Indication: PYREXIA
     Route: 065
     Dates: start: 20060904

REACTIONS (2)
  - GASTROINTESTINAL DISORDER [None]
  - ILEUS PARALYTIC [None]
